FAERS Safety Report 19500311 (Version 2)
Quarter: 2022Q4

REPORT INFORMATION
  Report Type: Other
  Country: US (occurrence: None)
  Receive Date: 20210707
  Receipt Date: 20221111
  Transmission Date: 20230113
  Serious: Yes (Other)
  Sender: FDA-Public Use
  Company Number: US-ROCHE-2862947

PATIENT
  Sex: Female

DRUGS (7)
  1. RITUXAN [Suspect]
     Active Substance: RITUXIMAB
     Indication: Rheumatoid arthritis
     Dosage: INFUSE 1000 MG INTRAVENOUSLY EVERY 6-8 MONTH(S)
     Route: 041
  2. RITUXAN [Suspect]
     Active Substance: RITUXIMAB
     Route: 041
  3. METHOTREXATE SODIUM [Concomitant]
     Active Substance: METHOTREXATE SODIUM
     Dosage: INJECT 0.6 MILLILITER SUBCUTANEOUSLY
  4. ASPIRIN [Concomitant]
     Active Substance: ASPIRIN
     Dosage: TAKE ON TABLET (81 MG TOTAL) BY MOUTH DAILY
  5. FOLIC ACID [Concomitant]
     Active Substance: FOLIC ACID
     Dosage: TAKE 1 TABLET (1 MG TOTAL) BY MOUTH DAILY
  6. ETODOLAC [Concomitant]
     Active Substance: ETODOLAC
     Dosage: TAKE 1 TABLET (400 MG TOTAL) BY MOUTH DAILY
  7. CHOLECALCIFEROL [Concomitant]
     Active Substance: CHOLECALCIFEROL
     Dosage: TAKE 1 CAPSULE BY MOUTH DAILY
     Route: 048

REACTIONS (5)
  - Retinal vein occlusion [Unknown]
  - Product prescribing error [Unknown]
  - Product prescribing error [Unknown]
  - Off label use [Unknown]
  - Incorrect dose administered [Unknown]
